FAERS Safety Report 5750742-0 (Version None)
Quarter: 2008Q2

REPORT INFORMATION
  Report Type: 
  Country: None (occurrence: None)
  Receive Date: 20080523
  Receipt Date: 20080523
  Transmission Date: 20081010
  Serious: Yes (Disabling)
  Sender: FDA-Public Use
  Company Number: None

PATIENT
  Age: 64 Year
  Sex: Female
  Weight: 81.6475 kg

DRUGS (1)
  1. LASIX [Suspect]
     Indication: FLUID RETENTION
     Dates: start: 20080104, end: 20080105

REACTIONS (5)
  - DEAFNESS UNILATERAL [None]
  - DIZZINESS [None]
  - NO THERAPEUTIC RESPONSE [None]
  - TINNITUS [None]
  - VIRAL INFECTION [None]
